FAERS Safety Report 22371301 (Version 1)
Quarter: 2023Q2

REPORT INFORMATION
  Report Type: Spontaneous
  Country: CA (occurrence: CA)
  Receive Date: 20230526
  Receipt Date: 20230526
  Transmission Date: 20230722
  Serious: Yes (Other)
  Sender: FDA-Public Use
  Company Number: CA-GLAXOSMITHKLINE-CA2023AMR071645

PATIENT

DRUGS (5)
  1. LAMOTRIGINE [Suspect]
     Active Substance: LAMOTRIGINE
     Indication: Epilepsy
     Dosage: 75 MG, BID
     Route: 048
  2. IRON [Concomitant]
     Active Substance: IRON
     Indication: Product used for unknown indication
     Dosage: UNK
  3. MARVELON28 [Concomitant]
     Indication: Product used for unknown indication
     Dosage: UNK
  4. PROZAC [Concomitant]
     Active Substance: FLUOXETINE HYDROCHLORIDE
     Indication: Product used for unknown indication
     Dosage: UNK
  5. VITAMIN B12 [Concomitant]
     Active Substance: CYANOCOBALAMIN
     Indication: Product used for unknown indication
     Dosage: UNK

REACTIONS (10)
  - Headache [Unknown]
  - Lymphadenopathy [Unknown]
  - Pain [Unknown]
  - Pain of skin [Unknown]
  - Pyrexia [Unknown]
  - Rash [Unknown]
  - Rash maculo-papular [Unknown]
  - Rash morbilliform [Unknown]
  - Tenderness [Unknown]
  - Throat tightness [Unknown]
